FAERS Safety Report 12167862 (Version 1)
Quarter: 2016Q1

REPORT INFORMATION
  Report Type: Spontaneous
  Country: KR (occurrence: KR)
  Receive Date: 20160310
  Receipt Date: 20160310
  Transmission Date: 20160526
  Serious: Yes (Hospitalization, Other)
  Sender: FDA-Public Use
  Company Number: PHHY2015KR165204

PATIENT
  Age: 43 Year
  Sex: Female

DRUGS (3)
  1. AFINITOR [Suspect]
     Active Substance: EVEROLIMUS
     Indication: TUBEROUS SCLEROSIS
     Dosage: 10 MG, QD
     Route: 065
     Dates: start: 20130829
  2. WARFARIN [Concomitant]
     Active Substance: WARFARIN
     Indication: PRODUCT USED FOR UNKNOWN INDICATION
     Dosage: UNK
     Route: 065
  3. AFINITOR [Suspect]
     Active Substance: EVEROLIMUS
     Dosage: 7.5 MG, QD
     Route: 065
     Dates: start: 20140414, end: 201411

REACTIONS (7)
  - Pelvic abscess [Unknown]
  - Pneumonia klebsiella [Unknown]
  - Pneumonitis [Unknown]
  - Angiomyolipoma [Unknown]
  - Anaemia [Unknown]
  - Pseudomembranous colitis [Unknown]
  - Deep vein thrombosis [Unknown]

NARRATIVE: CASE EVENT DATE: 201404
